FAERS Safety Report 16278378 (Version 1)
Quarter: 2019Q2

REPORT INFORMATION
  Report Type: Spontaneous
  Country: CA (occurrence: CA)
  Receive Date: 20190506
  Receipt Date: 20190506
  Transmission Date: 20190711
  Serious: Yes (Other)
  Sender: FDA-Public Use
  Company Number: CA-PURDUE PHARMA-CAN-2019-0009997

PATIENT
  Age: 28 Year
  Sex: Female

DRUGS (11)
  1. INFLIXIMAB [Suspect]
     Active Substance: INFLIXIMAB
     Indication: COLITIS ULCERATIVE
     Dosage: UNK
     Route: 042
  2. VANCOMYCIN                         /00314402/ [Concomitant]
     Active Substance: VANCOMYCIN
     Dosage: 125 MG, UNK (CYCLICAL)
     Route: 048
  3. REMICADE [Concomitant]
     Active Substance: INFLIXIMAB
  4. APO-PREDNISONE [Concomitant]
     Active Substance: PREDNISONE
     Dosage: 50 MG, UNK
  5. ASACOL [Concomitant]
     Active Substance: MESALAMINE
     Dosage: 3 DF, BID
     Route: 048
  6. FERROUS FUMARATE [Concomitant]
     Active Substance: FERROUS FUMARATE
  7. NYSTATIN. [Concomitant]
     Active Substance: NYSTATIN
     Dosage: 100 MG, BID
     Route: 048
  8. DILAUDID [Suspect]
     Active Substance: HYDROMORPHONE HYDROCHLORIDE
     Indication: PRODUCT USED FOR UNKNOWN INDICATION
     Dosage: UNK
     Route: 065
  9. ACETAMINOPHEN. [Concomitant]
     Active Substance: ACETAMINOPHEN
  10. GRAVOL [Concomitant]
     Active Substance: DIMENHYDRINATE
  11. IRON [Concomitant]
     Active Substance: IRON
     Dosage: 300 MG, BID
     Route: 048

REACTIONS (6)
  - Mania [Unknown]
  - Abnormal behaviour [Unknown]
  - Restlessness [Unknown]
  - Substance use disorder [Unknown]
  - Crying [Unknown]
  - Confusional state [Unknown]
